FAERS Safety Report 9405231 (Version 1)
Quarter: 2013Q3

REPORT INFORMATION
  Report Type: Spontaneous
  Country: HR (occurrence: HR)
  Receive Date: 20130717
  Receipt Date: 20130717
  Transmission Date: 20140515
  Serious: Yes (Other)
  Sender: FDA-Public Use
  Company Number: PHHY2013HR074355

PATIENT
  Age: 63 Year
  Sex: Female
  Weight: 55 kg

DRUGS (4)
  1. KLIMICIN [Suspect]
     Route: 048
     Dates: start: 20130614, end: 20130615
  2. OSSEOR [Concomitant]
     Indication: OSTEOPOROSIS
     Route: 048
     Dates: start: 20090127
  3. AREMED [Concomitant]
     Indication: BREAST CANCER
     Route: 048
     Dates: start: 20130611
  4. SANVAL [Concomitant]
     Indication: INSOMNIA
     Route: 048
     Dates: start: 20121024

REACTIONS (3)
  - Throat tightness [Recovered/Resolved]
  - Dysphagia [Recovered/Resolved]
  - Asphyxia [Recovered/Resolved]
